FAERS Safety Report 7230462-6 (Version None)
Quarter: 2011Q1

REPORT INFORMATION
  Report Type: 
  Country: None (occurrence: None)
  Receive Date: 20110118
  Receipt Date: 20110111
  Transmission Date: 20110831
  Serious: Yes (Hospitalization)
  Sender: FDA-Public Use
  Company Number: MY-BRISTOL-MYERS SQUIBB COMPANY-15437312

PATIENT
  Age: 50 Year
  Sex: Female
  Weight: 43 kg

DRUGS (7)
  1. ONDANSETRON [Concomitant]
     Route: 042
     Dates: start: 20101113
  2. FLUOROURACIL [Suspect]
     Indication: COLORECTAL CANCER METASTATIC
     Dosage: 400MG/M2 BOLUS,2400MG/M2 4INF RECENT 20NOV10. INTR 2DEC10(CYL 5) REST 13DEC2010 3736MG,3970MG/M2
     Route: 042
     Dates: start: 20100907
  3. HYDROCORTISONE [Concomitant]
     Route: 042
     Dates: start: 20101120
  4. OXALIPLATIN [Suspect]
     Indication: COLORECTAL CANCER METASTATIC
     Dosage: 4 INF RECENT INF:20NOV2010. INTRRUPTED ON 2DEC2010(CYCLE 5) RESTART 13DEC2010;134MG,140MG/M2
     Route: 042
     Dates: start: 20100907
  5. CHLORPHENIRAMINE [Concomitant]
     Dosage: AND ON 20NOV2010
     Route: 042
     Dates: start: 20101102
  6. CETUXIMAB [Suspect]
     Indication: COLORECTAL CANCER METASTATIC
     Dosage: 4 INF 5MG/ML RECENT INF 20NOV2010. INTT 2DEC2010(CYCLE 5) RESTART 13DEC2010;670MG,760MG/M2
     Route: 042
     Dates: start: 20100907
  7. FOLINIC ACID [Suspect]
     Indication: COLORECTAL CANCER METASTATIC
     Dosage: NO OF INF:4 RECENT INF ON 20NOV2010. INTRRUPTED ON 2DEC2010(CYCLE 5) RESTART 13DEC2010:286MG/M2
     Route: 042
     Dates: start: 20100907

REACTIONS (3)
  - HYPONATRAEMIA [None]
  - HYPOKALAEMIA [None]
  - DIARRHOEA [None]
